FAERS Safety Report 13163458 (Version 1)
Quarter: 2017Q1

REPORT INFORMATION
  Report Type: Spontaneous
  Country: US (occurrence: US)
  Receive Date: 20170130
  Receipt Date: 20170130
  Transmission Date: 20170428
  Serious: No
  Sender: FDA-Public Use
  Company Number: US-009507513-1701USA011742

PATIENT
  Age: 55 Year
  Sex: Female

DRUGS (1)
  1. NOXAFIL [Suspect]
     Active Substance: POSACONAZOLE
     Indication: TRICHOSPORON INFECTION
     Dosage: 200 MG, ONCE DAILY
     Route: 048
     Dates: start: 20160705, end: 20161004

REACTIONS (7)
  - Muscle spasms [Unknown]
  - Pyrexia [Unknown]
  - Product use issue [Unknown]
  - Fatigue [Unknown]
  - Alopecia [Unknown]
  - Nausea [Unknown]
  - Hypertension [Unknown]
